FAERS Safety Report 10088941 (Version 1)
Quarter: 2014Q2

REPORT INFORMATION
  Report Type: Spontaneous
  Country: US (occurrence: US)
  Receive Date: 20140421
  Receipt Date: 20140421
  Transmission Date: 20141212
  Serious: No
  Sender: FDA-Public Use
  Company Number: US-009507513-1404USA006311

PATIENT
  Sex: 0
  Weight: 100.2 kg

DRUGS (1)
  1. IMPLANON [Suspect]
     Dosage: 68 MG, 1 ROD
     Route: 059
     Dates: start: 20110421, end: 20140408

REACTIONS (3)
  - Complication of device removal [Unknown]
  - Device breakage [Unknown]
  - Product quality issue [Unknown]
